FAERS Safety Report 4330110-9 (Version None)
Quarter: 2004Q1

REPORT INFORMATION
  Report Type: 
  Country: None (occurrence: None)
  Receive Date: 20040329
  Receipt Date: 20040316
  Transmission Date: 20041129
  Serious: Yes (Hospitalization)
  Sender: FDA-Public Use
  Company Number: GB-JNJFOC-20040303583

PATIENT
  Age: 47 Year
  Sex: Female

DRUGS (5)
  1. REMICADE [Suspect]
     Indication: RHEUMATOID ARTHRITIS
     Dosage: 200 MG, INTRAVENOUS
     Route: 042
     Dates: start: 20021216
  2. METHOTREXATE [Concomitant]
  3. FOLIC ACID [Concomitant]
  4. CO-COMADOL (PANADEINE CO) [Concomitant]
  5. ACETAMINOPHEN [Concomitant]

REACTIONS (2)
  - OEDEMA PERIPHERAL [None]
  - PAIN IN EXTREMITY [None]
